FAERS Safety Report 8155575-6 (Version None)
Quarter: 2012Q1

REPORT INFORMATION
  Report Type: 
  Country: None (occurrence: None)
  Receive Date: 20120222
  Receipt Date: 20120215
  Transmission Date: 20120608
  Serious: Yes (Death, Hospitalization)
  Sender: FDA-Public Use
  Company Number: JP-BAYER-2011-064927

PATIENT
  Age: 77 Year
  Sex: Male
  Weight: 50 kg

DRUGS (17)
  1. NEXAVAR [Suspect]
     Dosage: 200 MG
     Route: 048
     Dates: start: 20110506, end: 20110509
  2. GLYCINE [Concomitant]
     Indication: HEPATIC CIRRHOSIS
     Dosage: DAILY DOSE 60 ML
     Route: 042
     Dates: end: 20110218
  3. ISOSORBIDE DINITRATE [Concomitant]
     Indication: ATRIAL FIBRILLATION
     Dosage: DAILY DOSE 40 MG
     Route: 062
     Dates: end: 20110804
  4. WARFARIN SODIUM [Concomitant]
     Indication: ATRIAL FIBRILLATION
     Dosage: UNK
     Route: 048
     Dates: end: 20110721
  5. NEXAVAR [Suspect]
     Dosage: 600 MG
     Route: 048
     Dates: start: 20110401, end: 20110505
  6. LANSOPRAZOLE [Concomitant]
     Indication: HEPATIC CIRRHOSIS
     Dosage: DAILY DOSE 15 MG
     Route: 048
     Dates: end: 20110721
  7. GLYCYRRHIZINATE POTASSIUM [Concomitant]
     Indication: HEPATIC CIRRHOSIS
     Dosage: DAILY DOSE 60 ML
     Route: 042
     Dates: end: 20110218
  8. L-CYSTEINE HCL 8.8% [Concomitant]
     Indication: HEPATIC CIRRHOSIS
     Dosage: DAILY DOSE 60 ML
     Route: 042
     Dates: end: 20110218
  9. UREPEARL [Concomitant]
     Indication: PROPHYLAXIS
     Dosage: UNK
     Route: 061
  10. NEXAVAR [Suspect]
     Indication: HEPATIC NEOPLASM MALIGNANT
     Dosage: 600 MG
     Route: 048
     Dates: start: 20110125, end: 20110207
  11. NEXAVAR [Suspect]
     Dosage: 200 MG
     Route: 048
     Dates: start: 20110608, end: 20110613
  12. FERROUS CITRATE [Concomitant]
     Indication: ANAEMIA
     Dosage: DAILY DOSE 100 MG
     Route: 048
     Dates: end: 20110524
  13. ADALAT CC [Concomitant]
     Indication: HYPERTENSION
     Dosage: DAILY DOSE 20 MG
     Route: 048
     Dates: end: 20110719
  14. GRAMALIL [Concomitant]
     Indication: RESTLESSNESS
     Dosage: 25 MG, PRN
     Route: 048
     Dates: start: 20110614, end: 20110721
  15. NEXAVAR [Suspect]
     Dosage: 600 MG
     Route: 048
     Dates: start: 20110209, end: 20110210
  16. NEXAVAR [Suspect]
     Dosage: 400 MG
     Route: 048
     Dates: start: 20110211, end: 20110331
  17. EPLERENONE [Concomitant]
     Indication: HYPERTENSION
     Dosage: DAILY DOSE 25 MG
     Route: 048
     Dates: start: 20110608, end: 20110719

REACTIONS (6)
  - HEPATIC NEOPLASM MALIGNANT [None]
  - HEPATIC FUNCTION ABNORMAL [None]
  - ABDOMINAL PAIN UPPER [None]
  - CARDIAC FAILURE CONGESTIVE [None]
  - PROGRESSIVE MULTIFOCAL LEUKOENCEPHALOPATHY [None]
  - OEDEMA PERIPHERAL [None]
